FAERS Safety Report 9147170 (Version 2)
Quarter: 2014Q1

REPORT INFORMATION
  Report Type: Report from Study
  Country: DE (occurrence: DE)
  Receive Date: 20130307
  Receipt Date: 20140217
  Transmission Date: 20141002
  Serious: Yes (Hospitalization)
  Sender: FDA-Public Use
  Company Number: DE-ELI_LILLY_AND_COMPANY-DE201302008636

PATIENT
  Sex: Female

DRUGS (4)
  1. TERIPARATIDE [Suspect]
     Indication: OSTEOPOROSIS
     Dosage: UNK UNK, QD
     Route: 058
     Dates: start: 20120825, end: 20140111
  2. INSULIN [Concomitant]
     Dosage: UNK
  3. ASS [Concomitant]
  4. LAMOTRIGIN [Concomitant]

REACTIONS (4)
  - Cholecystitis [Unknown]
  - Breast pain [Unknown]
  - Fall [Unknown]
  - Upper limb fracture [Unknown]
